FAERS Safety Report 6631606-7 (Version None)
Quarter: 2010Q1

REPORT INFORMATION
  Report Type: 
  Country: None (occurrence: None)
  Receive Date: 20100312
  Receipt Date: 20100302
  Transmission Date: 20100710
  Serious: Yes (Hospitalization, Other)
  Sender: FDA-Public Use
  Company Number: AT-SANOFI-AVENTIS-2010SA012052

PATIENT
  Sex: Female
  Weight: 78 kg

DRUGS (1)
  1. FERRLECIT [Suspect]
     Indication: IRON DEFICIENCY
     Route: 051
     Dates: start: 20100203, end: 20100205

REACTIONS (4)
  - INFUSION SITE NERVE DAMAGE [None]
  - INJECTION SITE INFLAMMATION [None]
  - THROMBOPHLEBITIS [None]
  - WRONG TECHNIQUE IN DRUG USAGE PROCESS [None]
